FAERS Safety Report 25984342 (Version 1)
Quarter: 2025Q4

REPORT INFORMATION
  Report Type: Spontaneous
  Country: US (occurrence: None)
  Receive Date: 20251031
  Receipt Date: 20251031
  Transmission Date: 20260117
  Serious: No
  Sender: ALKERMES
  Company Number: US-ALKERMES INC.-ALK-2025-002890

PATIENT
  Age: 39 Year
  Sex: Male

DRUGS (1)
  1. LYBALVI [Suspect]
     Active Substance: OLANZAPINE\SAMIDORPHAN L-MALATE
     Indication: Product used for unknown indication
     Dosage: UNK, QD

REACTIONS (4)
  - Obstructive sleep apnoea syndrome [Unknown]
  - Hypertension [Unknown]
  - Weight increased [Recovering/Resolving]
  - Glucose tolerance impaired [Unknown]
